FAERS Safety Report 14767888 (Version 1)
Quarter: 2018Q2

REPORT INFORMATION
  Report Type: Spontaneous
  Country: US (occurrence: US)
  Receive Date: 20180417
  Receipt Date: 20180417
  Transmission Date: 20180711
  Serious: No
  Sender: FDA-Public Use
  Company Number: US-HORIZON-VIM-0064-2018

PATIENT
  Age: 28 Year
  Sex: Female

DRUGS (1)
  1. VIMOVO [Suspect]
     Active Substance: ESOMEPRAZOLE MAGNESIUM\NAPROXEN
     Indication: PSORIATIC ARTHROPATHY
     Dosage: TWICE A DAY

REACTIONS (3)
  - Malabsorption [Unknown]
  - Off label use [Unknown]
  - Insurance issue [Unknown]
